FAERS Safety Report 9543290 (Version 1)
Quarter: 2013Q2

REPORT INFORMATION
  Report Type: Spontaneous
  Country: US (occurrence: None)
  Receive Date: 20130524
  Receipt Date: 20130524
  Transmission Date: 20140414
  Serious: No
  Sender: FDA-Public Use
  Company Number: PHEH2013US002127

PATIENT
  Sex: Female
  Weight: 79.4 kg

DRUGS (20)
  1. GILENYA [Suspect]
     Indication: MULTIPLE SCLEROSIS
     Route: 048
     Dates: start: 20130116
  2. AMBIEN (ZOLPIDEM TARTRATE) [Concomitant]
  3. LIPITOR (ATORVASTATIN CALCIUM) [Concomitant]
  4. LISINOPRIL [Concomitant]
  5. CITALOPRAM [Concomitant]
  6. BACLOFEN [Concomitant]
  7. OMEGA 3 FISH OIL [Concomitant]
  8. CO Q 10 (UBIDECARENONE) [Concomitant]
  9. HYDROCHLOROTHIAZIDE [Concomitant]
  10. SIMVASTATIN [Concomitant]
  11. SUMATRIPTAN SUCCINATE [Concomitant]
  12. ACTONEL (RISEDRONATE SODIUM) [Concomitant]
  13. CARVEDIOL (CARVEDILOL) [Concomitant]
  14. AMITRIPTYLINE HCL [Concomitant]
  15. AP CALCIUM+VIT D (CALCIUM, COLECALCIFEROL) [Concomitant]
  16. COLACE [Concomitant]
  17. SUPER B COMPLEX /01995301/ (ASCORBIC ACID, BIOTIN, CALCIUM PANTOTHENATE, CHOLINE BITARTRATE, CYANOCOBALAMIN, FOLIC ACID, INOSITOL, NICOTINAMIDE, PYRIDOXINE HYDROCHLORIDE, RIBOFLAVIN, THIAMINE MONONITRATE) [Concomitant]
  18. MULTI-VIT (VITAMINS NOS) [Concomitant]
  19. SOLUMEDROL (METHYLPREDNISOLONE SODIUM SUCCINATE) [Concomitant]
  20. RITALIN (METHYLPHENIDATE HYDROCHLORIDE) [Concomitant]

REACTIONS (1)
  - Paraesthesia [None]
